FAERS Safety Report 18979767 (Version 2)
Quarter: 2021Q1

REPORT INFORMATION
  Report Type: Spontaneous
  Country: US (occurrence: US)
  Receive Date: 20210308
  Receipt Date: 20210316
  Transmission Date: 20210420
  Serious: Yes (Other)
  Sender: FDA-Public Use
  Company Number: US-PFIZER INC-2021204677

PATIENT
  Sex: Female

DRUGS (1)
  1. PREMARIN [Suspect]
     Active Substance: ESTROGENS, CONJUGATED
     Dosage: UNK

REACTIONS (9)
  - Insomnia [Unknown]
  - Vaginal haemorrhage [Unknown]
  - Dementia [Unknown]
  - Heart rate increased [Unknown]
  - Alopecia [Unknown]
  - Pain in extremity [Unknown]
  - Mental disorder [Unknown]
  - Angina pectoris [Unknown]
  - Chest pain [Unknown]
